FAERS Safety Report 7124668-4 (Version None)
Quarter: 2010Q4

REPORT INFORMATION
  Report Type: 
  Country: None (occurrence: None)
  Receive Date: 20101122
  Receipt Date: 20101122
  Transmission Date: 20110411
  Serious: Yes (Hospitalization)
  Sender: FDA-Public Use
  Company Number: None

PATIENT
  Sex: Female
  Weight: 58.9676 kg

DRUGS (1)
  1. BETASERON [Suspect]
     Indication: RELAPSING-REMITTING MULTIPLE SCLEROSIS
     Dates: start: 19960128, end: 19960315

REACTIONS (6)
  - COMMUNICATION DISORDER [None]
  - DEPRESSION [None]
  - FATIGUE [None]
  - HYPOPHAGIA [None]
  - INJECTION SITE NECROSIS [None]
  - SUICIDAL IDEATION [None]
